FAERS Safety Report 12536075 (Version 3)
Quarter: 2016Q3

REPORT INFORMATION
  Report Type: Spontaneous
  Country: US (occurrence: US)
  Receive Date: 20160707
  Receipt Date: 20160808
  Transmission Date: 20161109
  Serious: No
  Sender: FDA-Public Use
  Company Number: US-BEH-2016058097

PATIENT
  Sex: Male
  Weight: 76 kg

DRUGS (14)
  1. HIZENTRA [Suspect]
     Active Substance: HUMAN IMMUNOGLOBULIN G
     Indication: IMMUNODEFICIENCY COMMON VARIABLE
     Route: 058
  2. EPI-PEN AUTOINJECTOR [Concomitant]
  3. VITAMIN C [Concomitant]
     Active Substance: ASCORBIC ACID
     Dosage: SA
  4. HIZENTRA [Suspect]
     Active Substance: HUMAN IMMUNOGLOBULIN G
     Route: 058
  5. OLIVE LEAF EXTRACT [Concomitant]
  6. COQ10 [Concomitant]
     Active Substance: UBIDECARENONE
  7. HIZENTRA [Suspect]
     Active Substance: HUMAN IMMUNOGLOBULIN G
     Dates: start: 20101019
  8. LMX [Concomitant]
     Active Substance: LIDOCAINE
  9. DIPHENHYDRAMINE. [Concomitant]
     Active Substance: DIPHENHYDRAMINE
  10. MULTIVITAMINS [Concomitant]
     Active Substance: VITAMINS
  11. SODIUM CHLORIDE. [Concomitant]
     Active Substance: SODIUM CHLORIDE
  12. EPA-DHA [Concomitant]
     Dosage: 720 SOFTGEL
  13. HIZENTRA [Suspect]
     Active Substance: HUMAN IMMUNOGLOBULIN G
     Route: 058
  14. ACETAMINOPHEN. [Concomitant]
     Active Substance: ACETAMINOPHEN

REACTIONS (1)
  - Sinusitis [Unknown]
